FAERS Safety Report 9649295 (Version 2)
Quarter: 2013Q4

REPORT INFORMATION
  Report Type: Spontaneous
  Country: US (occurrence: US)
  Receive Date: 20131028
  Receipt Date: 20131127
  Transmission Date: 20140711
  Serious: Yes (Other)
  Sender: FDA-Public Use
  Company Number: US-TEVA-440622USA

PATIENT
  Age: 32 Year
  Sex: Female
  Weight: 69.01 kg

DRUGS (3)
  1. PARAGARD 380A [Suspect]
     Indication: CONTRACEPTION
     Route: 015
     Dates: start: 20130805, end: 20131024
  2. LEXAPRO [Concomitant]
     Indication: DEPRESSION
  3. CLONAZEPAM [Concomitant]
     Indication: DEPRESSION

REACTIONS (3)
  - Device dislocation [Recovered/Resolved]
  - Device expulsion [Recovered/Resolved]
  - Abdominal pain [Recovered/Resolved]
